FAERS Safety Report 13005850 (Version 2)
Quarter: 2016Q4

REPORT INFORMATION
  Report Type: Spontaneous
  Country: US (occurrence: US)
  Receive Date: 20161207
  Receipt Date: 20161207
  Transmission Date: 20170207
  Serious: Yes (Death, Other)
  Sender: FDA-Public Use
  Company Number: US-CELGENEUS-USA-2015022417

PATIENT

DRUGS (1)
  1. VIDAZA [Suspect]
     Active Substance: AZACITIDINE
     Indication: MYELODYSPLASTIC SYNDROME
     Dosage: 75 MG
     Route: 065

REACTIONS (6)
  - Acute myeloid leukaemia [Unknown]
  - Febrile neutropenia [Unknown]
  - Drug ineffective [Unknown]
  - Infection [Unknown]
  - Death [Fatal]
  - Myelodysplastic syndrome [Unknown]
